FAERS Safety Report 9960075 (Version 1)
Quarter: 2014Q1

REPORT INFORMATION
  Report Type: Spontaneous
  Country: US (occurrence: None)
  Receive Date: 20140228
  Receipt Date: 20140228
  Transmission Date: 20141002
  Serious: No
  Sender: FDA-Public Use
  Company Number: None

PATIENT
  Age: 43 Year
  Sex: Female

DRUGS (2)
  1. VELCADE [Suspect]
     Indication: PLASMA CELL MYELOMA
     Dates: start: 20111005, end: 20111218
  2. DEXAMETHASONE [Suspect]
     Indication: PLASMA CELL MYELOMA

REACTIONS (5)
  - Fatigue [None]
  - Neuropathy peripheral [None]
  - Injection site irritation [None]
  - Injection site erythema [None]
  - Injection site pain [None]
